FAERS Safety Report 6133875-9 (Version None)
Quarter: 2009Q1

REPORT INFORMATION
  Report Type: 
  Country: None (occurrence: None)
  Receive Date: 20090326
  Receipt Date: 20090318
  Transmission Date: 20090719
  Serious: Yes (Hospitalization, Other)
  Sender: FDA-Public Use
  Company Number: PHHY2008MX22807

PATIENT
  Age: 29 Year
  Sex: Female

DRUGS (3)
  1. TRILEPTAL [Suspect]
     Indication: EPILEPSY
     Dosage: 2 TABLETS (600 MG) PER DAY
     Route: 048
     Dates: start: 20020401, end: 20080917
  2. TRILEPTAL [Suspect]
     Dosage: 2 TABLETS (300 MG) PER DAY
     Route: 048
     Dates: start: 20080918, end: 20090301
  3. TRILEPTAL [Suspect]
     Dosage: 3 TABLETS (300 MG) PER DAY
     Dates: start: 20090301

REACTIONS (9)
  - ANXIETY [None]
  - CONVULSION [None]
  - DRUG EXPOSURE DURING PREGNANCY [None]
  - GRAND MAL CONVULSION [None]
  - HAEMATOMA [None]
  - HEAD INJURY [None]
  - HYPOREFLEXIA [None]
  - PETIT MAL EPILEPSY [None]
  - TACHYCARDIA [None]
